FAERS Safety Report 24583586 (Version 1)
Quarter: 2024Q4

REPORT INFORMATION
  Report Type: Spontaneous
  Country: CA (occurrence: CA)
  Receive Date: 20241106
  Receipt Date: 20241106
  Transmission Date: 20250114
  Serious: Yes (Hospitalization, Other)
  Sender: JOHNSON AND JOHNSON
  Company Number: CA-JNJFOC-20241101578

PATIENT
  Age: 42 Year
  Sex: Male

DRUGS (4)
  1. INVEGA TRINZA [Suspect]
     Active Substance: PALIPERIDONE PALMITATE
     Indication: Product used for unknown indication
     Route: 030
  2. INVEGA TRINZA [Suspect]
     Active Substance: PALIPERIDONE PALMITATE
  3. INVEGA TRINZA [Suspect]
     Active Substance: PALIPERIDONE PALMITATE
  4. ABILIFY [Suspect]
     Active Substance: ARIPIPRAZOLE
     Indication: Product used for unknown indication
     Route: 048

REACTIONS (10)
  - White blood cell count increased [Unknown]
  - Autism spectrum disorder [Unknown]
  - Blood prolactin increased [Unknown]
  - Blood triglycerides increased [Unknown]
  - Communication disorder [Unknown]
  - Diabetes mellitus [Unknown]
  - Dysphonia [Unknown]
  - Infertility [Unknown]
  - Language disorder [Unknown]
  - Male sexual dysfunction [Unknown]
